FAERS Safety Report 10229188 (Version 1)
Quarter: 2014Q2

REPORT INFORMATION
  Report Type: Report from Study
  Country: CZ (occurrence: CZ)
  Receive Date: 20140611
  Receipt Date: 20140611
  Transmission Date: 20141212
  Serious: Yes (Other)
  Sender: FDA-Public Use
  Company Number: CZ-ROCHE-1415688

PATIENT
  Age: 60 Year
  Sex: Male

DRUGS (2)
  1. VEMURAFENIB [Suspect]
     Indication: METASTATIC MALIGNANT MELANOMA
     Route: 048
     Dates: start: 20120507
  2. VEMURAFENIB [Suspect]
     Route: 048

REACTIONS (8)
  - Photosensitivity reaction [Unknown]
  - Squamous cell carcinoma of skin [Unknown]
  - Chalazion [Unknown]
  - Hyperkeratosis [Unknown]
  - Rash maculo-papular [Unknown]
  - Arthralgia [Unknown]
  - Alopecia [Unknown]
  - Dermal cyst [Unknown]
